FAERS Safety Report 4825084-8 (Version None)
Quarter: 2005Q4

REPORT INFORMATION
  Report Type: 
  Country: None (occurrence: None)
  Receive Date: 20051108
  Receipt Date: 20051027
  Transmission Date: 20060501
  Serious: Yes (Other)
  Sender: FDA-Public Use
  Company Number: SGBI-2005-00490

PATIENT
  Age: 58 Year
  Sex: Female

DRUGS (3)
  1. ANAGRELIDE HCL [Suspect]
     Indication: THROMBOCYTHAEMIA
     Dosage: SEE IMAGE
     Dates: start: 20050728, end: 20050804
  2. ANAGRELIDE HCL [Suspect]
     Indication: THROMBOCYTHAEMIA
     Dosage: SEE IMAGE
     Dates: start: 20050804, end: 20051011
  3. KARDEGIC /10740801/ (ACETYLSALICYLIC ACID) [Concomitant]

REACTIONS (5)
  - ANGIONEUROTIC OEDEMA [None]
  - ECZEMA [None]
  - PRURITUS [None]
  - RASH [None]
  - SKIN LESION [None]
